FAERS Safety Report 25278342 (Version 1)
Quarter: 2025Q2

REPORT INFORMATION
  Report Type: Spontaneous
  Country: US (occurrence: None)
  Receive Date: 20250506
  Receipt Date: 20250506
  Transmission Date: 20250717
  Serious: Yes (Disabling)
  Sender: FDA-CTU
  Company Number: None

PATIENT
  Age: 78 Year
  Sex: Female
  Weight: 58.5 kg

DRUGS (7)
  1. PROLIA [Suspect]
     Active Substance: DENOSUMAB
     Indication: Osteoporosis
     Route: 030
     Dates: start: 20231014, end: 20240415
  2. Atenenol [Concomitant]
  3. CRESTOR [Concomitant]
     Active Substance: ROSUVASTATIN CALCIUM
  4. FOSAMAX [Concomitant]
     Active Substance: ALENDRONATE SODIUM
  5. VITAMINS [Concomitant]
     Active Substance: VITAMINS
  6. CALCIUM\VITAMIN D [Concomitant]
     Active Substance: CALCIUM\VITAMIN D
  7. ASPIRIN [Concomitant]
     Active Substance: ASPIRIN

REACTIONS (8)
  - Muscular weakness [None]
  - Sciatica [None]
  - Neuralgia [None]
  - Mobility decreased [None]
  - Insomnia [None]
  - Gait disturbance [None]
  - Quality of life decreased [None]
  - Disability [None]

NARRATIVE: CASE EVENT DATE: 20240520
